FAERS Safety Report 10027505 (Version 2)
Quarter: 2014Q2

REPORT INFORMATION
  Report Type: Spontaneous
  Country: US (occurrence: US)
  Receive Date: 20140321
  Receipt Date: 20140411
  Transmission Date: 20141212
  Serious: Yes (Hospitalization)
  Sender: FDA-Public Use
  Company Number: US-PFIZER INC-2014080377

PATIENT
  Age: 69 Year
  Sex: Female

DRUGS (5)
  1. INLYTA [Suspect]
     Indication: RENAL CANCER
     Dosage: 5 MG, 2X/DAY
     Dates: start: 20140313
  2. INLYTA [Suspect]
     Dosage: 5 MG, DAILY
     Dates: start: 20140326
  3. INLYTA [Suspect]
     Dosage: 5 MG, BID
     Dates: start: 20140408
  4. FENTANYL [Concomitant]
     Indication: PAIN
     Dosage: 12 UG FOR 72 HOURS PATCH
  5. FENTANYL [Concomitant]
     Dosage: 2 OF THE 12 UG 72 HOURS PATCHED
     Dates: start: 20140405

REACTIONS (5)
  - Musculoskeletal chest pain [Unknown]
  - Myocardial infarction [Unknown]
  - Diarrhoea [Unknown]
  - Night sweats [Unknown]
  - Abnormal faeces [Unknown]
